FAERS Safety Report 6500925-7 (Version None)
Quarter: 2009Q4

REPORT INFORMATION
  Report Type: 
  Country: None (occurrence: None)
  Receive Date: 20091216
  Receipt Date: 20090422
  Transmission Date: 20100525
  Serious: No
  Sender: FDA-Public Use
  Company Number: A0780066A

PATIENT
  Age: 78 Year
  Sex: Female

DRUGS (4)
  1. NICOTINE POLACRILEX [Suspect]
     Indication: SMOKING CESSATION THERAPY
     Dates: start: 20081225
  2. NICOTINE POLACRILEX [Suspect]
     Indication: SMOKING CESSATION THERAPY
     Dates: start: 20081225
  3. NICOTINE POLACRILEX [Suspect]
     Indication: SMOKING CESSATION THERAPY
     Dates: start: 20081225
  4. NICORETTE [Suspect]
     Indication: SMOKING CESSATION THERAPY

REACTIONS (2)
  - INTENTIONAL DRUG MISUSE [None]
  - NICOTINE DEPENDENCE [None]
